FAERS Safety Report 6555413-9 (Version None)
Quarter: 2010Q1

REPORT INFORMATION
  Report Type: 
  Country: None (occurrence: None)
  Receive Date: 20100128
  Receipt Date: 20091016
  Transmission Date: 20100710
  Serious: No
  Sender: FDA-Public Use
  Company Number: A0812441A

PATIENT
  Sex: Female

DRUGS (1)
  1. BUPROPION [Suspect]
     Indication: DEPRESSION
     Dosage: 100MG THREE TIMES PER DAY
     Route: 065

REACTIONS (1)
  - DRUG INEFFECTIVE [None]
